FAERS Safety Report 6153858-2 (Version None)
Quarter: 2009Q2

REPORT INFORMATION
  Report Type: 
  Country: None (occurrence: None)
  Receive Date: 20090414
  Receipt Date: 20090406
  Transmission Date: 20091009
  Serious: Yes (Other)
  Sender: FDA-Public Use
  Company Number: US-JNJFOC-20090402074

PATIENT
  Age: 65 Year
  Sex: Female
  Weight: 86.18 kg

DRUGS (19)
  1. EXTRA STRENGTH TYLENOL [Suspect]
     Route: 048
  2. EXTRA STRENGTH TYLENOL [Suspect]
     Indication: EAR PAIN
     Route: 048
  3. COZAAR [Concomitant]
     Indication: HYPERTENSION
  4. AMLODIPINE BESYLATE [Concomitant]
     Indication: HYPERTENSION
  5. ADVAIR HFA [Concomitant]
     Indication: ASTHMA
     Dosage: 100/50 MG TWICE A DAY
  6. PREMARIN [Concomitant]
     Indication: OESTROGEN REPLACEMENT THERAPY
  7. HYDROCODONE BITARTRATE [Concomitant]
     Indication: HEADACHE
  8. FLUOXETINE [Concomitant]
  9. CYMBALTA [Concomitant]
     Indication: DEPRESSION
  10. ALPRAZOLAM [Concomitant]
     Indication: ANXIETY
  11. TRAZODONE HCL [Concomitant]
     Indication: INSOMNIA
  12. PROVIGIL [Concomitant]
  13. NYSTOP [Concomitant]
     Indication: SKIN INFECTION
  14. ALENDRONATE SODIUM [Concomitant]
     Indication: OSTEOPOROSIS
  15. VITAMIN D [Concomitant]
     Indication: OSTEOPOROSIS
  16. TUMS [Concomitant]
     Indication: GASTRIC BYPASS
  17. ZINC [Concomitant]
     Indication: ALOPECIA
  18. CALCIUM [Concomitant]
     Indication: ROUTINE HEALTH MAINTENANCE
  19. 4-WAY NASAL SPRAY [Concomitant]

REACTIONS (1)
  - FOREIGN BODY TRAUMA [None]
